FAERS Safety Report 9951706 (Version 1)
Quarter: 2014Q1

REPORT INFORMATION
  Report Type: Report from Study
  Country: US (occurrence: US)
  Receive Date: 20140304
  Receipt Date: 20140304
  Transmission Date: 20141002
  Serious: Yes (Hospitalization)
  Sender: FDA-Public Use
  Company Number: PHEH2014US003700

PATIENT
  Sex: Female

DRUGS (2)
  1. TOBI [Suspect]
     Indication: CHRONIC OBSTRUCTIVE PULMONARY DISEASE
     Dosage: 300 MG, BID
     Route: 048
  2. TOBI [Suspect]
     Indication: PNEUMONIA PSEUDOMONAL

REACTIONS (2)
  - Cough [Unknown]
  - Dyspnoea [Unknown]
